FAERS Safety Report 19091585 (Version 2)
Quarter: 2021Q2

REPORT INFORMATION
  Report Type: Spontaneous
  Country: HU (occurrence: HU)
  Receive Date: 20210405
  Receipt Date: 20210419
  Transmission Date: 20210717
  Serious: Yes (Other)
  Sender: FDA-Public Use
  Company Number: HU-BAYER-2021-116380

PATIENT
  Age: 48 Year
  Sex: Male

DRUGS (9)
  1. INTERFERON BETA ? 1B [Suspect]
     Active Substance: INTERFERON BETA-1B
     Indication: PRODUCT USED FOR UNKNOWN INDICATION
     Dosage: UNK, QD (3 MU)
     Route: 065
  2. NILOTINIB [Suspect]
     Active Substance: NILOTINIB
     Indication: PRODUCT USED FOR UNKNOWN INDICATION
     Dosage: UNK
     Route: 065
  3. DASATINIB. [Concomitant]
     Active Substance: DASATINIB
     Dosage: UNK
  4. INTERFERON BETA ? 1B [Suspect]
     Active Substance: INTERFERON BETA-1B
     Indication: PRODUCT USED FOR UNKNOWN INDICATION
     Dosage: UNK
     Route: 065
     Dates: start: 200902
  5. CYTOSAR [Concomitant]
     Active Substance: CYTARABINE
     Dosage: UNK
     Dates: start: 20010625, end: 20020404
  6. LITALIR [Concomitant]
     Active Substance: HYDROXYUREA
     Dosage: UNK
     Dates: start: 2002, end: 2002
  7. NILOTINIB [Suspect]
     Active Substance: NILOTINIB
     Indication: PRODUCT USED FOR UNKNOWN INDICATION
     Dosage: UNK
     Route: 065
     Dates: start: 200607
  8. DALACIN [STREPTOVARYCIN] [Concomitant]
     Dosage: UNK
     Dates: start: 2002
  9. INTERFERON BETA ? 1B [Suspect]
     Active Substance: INTERFERON BETA-1B
     Indication: PRODUCT USED FOR UNKNOWN INDICATION
     Dosage: UNK UNK, QD (3 MU)
     Route: 065

REACTIONS (3)
  - Vascular stenosis [Unknown]
  - Product use in unapproved indication [Unknown]
  - Fluorescent in situ hybridisation [Unknown]

NARRATIVE: CASE EVENT DATE: 201202
